FAERS Safety Report 9069671 (Version 1)
Quarter: 2013Q1

REPORT INFORMATION
  Report Type: Report from Study
  Country: US (occurrence: US)
  Receive Date: 20130131
  Receipt Date: 20130131
  Transmission Date: 20140127
  Serious: No
  Sender: FDA-Public Use
  Company Number: US-ABBOTT-12P-163-0999833-00

PATIENT
  Age: 45 Year
  Sex: Female

DRUGS (10)
  1. HUMIRA [Suspect]
     Indication: RHEUMATOID ARTHRITIS
     Dates: start: 20121016
  2. METHOCARBAMOL [Concomitant]
     Indication: MUSCLE RELAXANT THERAPY
     Dosage: 3 TIMES A DAY AS NEEDED
     Route: 048
  3. IBUPROFEN [Concomitant]
     Indication: RHEUMATOID ARTHRITIS
     Route: 048
  4. FENTANYL [Concomitant]
     Indication: PAIN
     Dosage: PATCH
  5. OXYCODONE [Concomitant]
     Indication: PAIN
     Route: 048
  6. PREDNISONE [Concomitant]
     Indication: RHEUMATOID ARTHRITIS
     Dosage: 10 MG DAILY
     Route: 048
  7. RESTORIL [Concomitant]
     Indication: ANXIETY
     Dosage: 2 MG DAILY
     Route: 048
  8. KLONOPIN [Concomitant]
     Indication: ANXIETY
     Route: 048
  9. KLONOPIN [Concomitant]
     Indication: PANIC DISORDER
  10. TRAZODONE [Concomitant]
     Indication: INSOMNIA
     Dosage: AT BEDTIME
     Route: 048

REACTIONS (4)
  - Arthritis [Not Recovered/Not Resolved]
  - Joint swelling [Not Recovered/Not Resolved]
  - Bone pain [Not Recovered/Not Resolved]
  - Erythema [Not Recovered/Not Resolved]
